FAERS Safety Report 5350986-6 (Version None)
Quarter: 2007Q2

REPORT INFORMATION
  Report Type: 
  Country: None (occurrence: None)
  Receive Date: 20070608
  Receipt Date: 20070601
  Transmission Date: 20071010
  Serious: Yes (Hospitalization)
  Sender: FDA-Public Use
  Company Number: FR-ASTRAZENECA-2006CG01760

PATIENT
  Age: 70 Year
  Sex: Male

DRUGS (5)
  1. HYTACAND [Suspect]
     Indication: HYPERTENSION
     Dosage: 16 + 12.5 MG DAILY
     Route: 048
     Dates: end: 20061006
  2. UMULINE NPH [Suspect]
     Indication: DIABETES MELLITUS
     Route: 058
     Dates: end: 20061009
  3. UMULINE RAPIDE [Suspect]
     Indication: DIABETES MELLITUS
     Route: 058
     Dates: end: 20061009
  4. PREVISCAN [Concomitant]
  5. TRAMADOL HCL [Concomitant]

REACTIONS (3)
  - HYPOGLYCAEMIA [None]
  - MALAISE [None]
  - ORTHOSTATIC HYPOTENSION [None]
